FAERS Safety Report 8392008-9 (Version None)
Quarter: 2012Q2

REPORT INFORMATION
  Report Type: 
  Country: None (occurrence: None)
  Receive Date: 20120529
  Receipt Date: 20120515
  Transmission Date: 20120825
  Serious: Yes (Other)
  Sender: FDA-Public Use
  Company Number: US-JNJFOC-20111000132

PATIENT
  Sex: Female
  Weight: 66.68 kg

DRUGS (7)
  1. OXYCODONE HCL AND ACETAMINOPHEN [Concomitant]
     Indication: BREAKTHROUGH PAIN
     Dosage: 10/650 EVERY 4-6 HOURLY AS NEEDED
     Route: 048
     Dates: start: 20090101
  2. DURAGESIC-100 [Suspect]
     Route: 062
     Dates: start: 20070101, end: 20120201
  3. CYMBALTA [Concomitant]
     Indication: ANTIDEPRESSANT THERAPY
     Route: 048
     Dates: start: 20090101
  4. DURAGESIC-100 [Suspect]
     Indication: BACK PAIN
     Route: 062
     Dates: start: 20120201
  5. DURAGESIC-100 [Suspect]
     Indication: BACK DISORDER
     Route: 062
  6. FENTANYL-100 [Suspect]
     Indication: BACK DISORDER
     Route: 062
     Dates: start: 19970101
  7. SIMVASTATIN [Concomitant]
     Indication: BLOOD CHOLESTEROL INCREASED
     Route: 048
     Dates: start: 20070101

REACTIONS (9)
  - DEPRESSION [None]
  - INTERVERTEBRAL DISC PROTRUSION [None]
  - BLOOD CHOLESTEROL INCREASED [None]
  - BREAKTHROUGH PAIN [None]
  - WRONG TECHNIQUE IN DRUG USAGE PROCESS [None]
  - DRUG ADMINISTERED AT INAPPROPRIATE SITE [None]
  - DERMATITIS [None]
  - DRUG EFFECT DECREASED [None]
  - PRODUCT QUALITY ISSUE [None]
